FAERS Safety Report 18414067 (Version 1)
Quarter: 2020Q4

REPORT INFORMATION
  Report Type: Spontaneous
  Country: US (occurrence: US)
  Receive Date: 20201022
  Receipt Date: 20201022
  Transmission Date: 20210114
  Serious: No
  Sender: FDA-Public Use
  Company Number: US-AMGEN-USASP2020168982

PATIENT
  Age: 39 Year
  Sex: Female

DRUGS (1)
  1. MVASI [Suspect]
     Active Substance: BEVACIZUMAB-AWWB
     Indication: LUNG ADENOCARCINOMA
     Dosage: 800 MILLIGRAM
     Route: 065
     Dates: start: 20200609

REACTIONS (1)
  - Laboratory test abnormal [Unknown]
